FAERS Safety Report 12575737 (Version 1)
Quarter: 2016Q3

REPORT INFORMATION
  Report Type: Spontaneous
  Country: US (occurrence: US)
  Receive Date: 20160720
  Receipt Date: 20160720
  Transmission Date: 20161109
  Serious: No
  Sender: FDA-Public Use
  Company Number: US-ACTELION-A-US2016-138484

PATIENT
  Age: 56 Year
  Sex: Male

DRUGS (4)
  1. TREPROSTINIL DIOLAMIN [Concomitant]
     Active Substance: TREPROSTINIL DIOLAMINE
  2. UPTRAVI [Suspect]
     Active Substance: SELEXIPAG
     Indication: PRODUCT USED FOR UNKNOWN INDICATION
     Route: 048
  3. AMBRISENTAN [Suspect]
     Active Substance: AMBRISENTAN
     Indication: PRODUCT USED FOR UNKNOWN INDICATION
     Dosage: 10 MG, QD
     Route: 065
  4. ADCIRCA [Concomitant]
     Active Substance: TADALAFIL

REACTIONS (6)
  - Musculoskeletal pain [Unknown]
  - Headache [Unknown]
  - Myalgia [Unknown]
  - Dyspepsia [Unknown]
  - Abdominal discomfort [Unknown]
  - Joint stiffness [Unknown]
